FAERS Safety Report 5729111-5 (Version None)
Quarter: 2008Q2

REPORT INFORMATION
  Report Type: 
  Country: None (occurrence: None)
  Receive Date: 20080505
  Receipt Date: 20080505
  Transmission Date: 20081010
  Serious: No
  Sender: FDA-Public Use
  Company Number: None

PATIENT
  Sex: Male
  Weight: 82.5547 kg

DRUGS (2)
  1. GABAPENTIN [Suspect]
     Indication: MIGRAINE
     Dosage: PRN
  2. GABAPENTIN [Suspect]
     Indication: PAIN
     Dosage: PRN

REACTIONS (1)
  - DRUG INEFFECTIVE [None]
